FAERS Safety Report 4497006-3 (Version None)
Quarter: 2004Q3

REPORT INFORMATION
  Report Type: 
  Country: None (occurrence: None)
  Receive Date: 20040928
  Receipt Date: 20040726
  Transmission Date: 20050211
  Serious: No
  Sender: FDA-Public Use
  Company Number: 04P-163-0268878-00

PATIENT
  Sex: Female

DRUGS (1)
  1. HUMIRA [Suspect]
     Dosage: 40 MG , SUBCUTANEOUS
     Route: 058

REACTIONS (2)
  - INJECTION SITE INDURATION [None]
  - INJECTION SITE STINGING [None]
